FAERS Safety Report 9550836 (Version 2)
Quarter: 2014Q2

REPORT INFORMATION
  Report Type: Spontaneous
  Country: US (occurrence: US)
  Receive Date: 20130924
  Receipt Date: 20140402
  Transmission Date: 20141212
  Serious: No
  Sender: FDA-Public Use
  Company Number: US-SANOFI-AVENTIS-2013SA057089

PATIENT
  Age: 65 Year
  Sex: Female

DRUGS (3)
  1. AUBAGIO [Suspect]
     Indication: MULTIPLE SCLEROSIS
     Dosage: TAKEN FROM: ABOUT 6 WEEKS AGO
     Route: 048
     Dates: start: 20130513
  2. VITAMINS [Suspect]
     Route: 065
  3. ALL OTHER THERAPEUTIC PRODUCTS [Concomitant]

REACTIONS (6)
  - Abdominal pain [Recovered/Resolved]
  - Raynaud^s phenomenon [Unknown]
  - Diarrhoea [Not Recovered/Not Resolved]
  - Nausea [Unknown]
  - Alopecia [Not Recovered/Not Resolved]
  - Therapeutic response decreased [Unknown]
